FAERS Safety Report 9827331 (Version 1)
Quarter: 2014Q1

REPORT INFORMATION
  Report Type: Spontaneous
  Country: FR (occurrence: FR)
  Receive Date: 20140117
  Receipt Date: 20140117
  Transmission Date: 20141002
  Serious: Yes (Hospitalization)
  Sender: FDA-Public Use
  Company Number: FR-SA-2014SA002963

PATIENT
  Age: 88 Year
  Sex: Female

DRUGS (17)
  1. LASILIX [Suspect]
     Indication: PRODUCT USED FOR UNKNOWN INDICATION
     Route: 048
     Dates: start: 201311, end: 20131120
  2. FUROSEMIDE [Suspect]
     Indication: PRODUCT USED FOR UNKNOWN INDICATION
     Route: 042
  3. FUROSEMIDE [Suspect]
     Indication: PRODUCT USED FOR UNKNOWN INDICATION
     Route: 042
     Dates: start: 20131125, end: 20131126
  4. FUROSEMIDE [Suspect]
     Indication: PRODUCT USED FOR UNKNOWN INDICATION
     Route: 042
     Dates: start: 20131126, end: 20131126
  5. RAMIPRIL [Concomitant]
     Route: 048
  6. CARDENSIEL [Concomitant]
     Route: 048
  7. KARDEGIC [Concomitant]
     Route: 048
  8. TAMOXIFEN [Concomitant]
     Route: 048
  9. INIPOMP [Concomitant]
     Route: 048
  10. KALEORID [Concomitant]
     Route: 048
  11. CALCIUM [Concomitant]
     Route: 048
  12. ALL OTHER THERAPEUTIC PRODUCTS [Concomitant]
     Route: 048
  13. LASILIX FAIBLE [Concomitant]
     Route: 048
  14. SMECTA [Concomitant]
     Route: 048
  15. HEMIGOXINE NATIVELLE [Concomitant]
     Route: 048
  16. VITAMINE C [Concomitant]
     Route: 048
  17. CALCIPARINE [Concomitant]
     Route: 058

REACTIONS (5)
  - Renal failure acute [Recovered/Resolved]
  - Blood creatinine increased [Recovered/Resolved]
  - Blood potassium increased [Recovered/Resolved]
  - Dehydration [Recovered/Resolved]
  - Fluid retention [Recovered/Resolved]
